FAERS Safety Report 9371579 (Version 1)
Quarter: 2013Q2

REPORT INFORMATION
  Report Type: Spontaneous
  Country: US (occurrence: None)
  Receive Date: 20130626
  Receipt Date: 20130626
  Transmission Date: 20140414
  Serious: Yes (Hospitalization)
  Sender: FDA-Public Use
  Company Number: None

PATIENT
  Age: 64 Year
  Sex: Female
  Weight: 82.4 kg

DRUGS (2)
  1. CEFAZOLIN [Suspect]
     Indication: DEVICE RELATED INFECTION
     Dosage: 1,000 MG EVERY 8 HOURS IV
     Route: 042
     Dates: start: 20130606, end: 20130613
  2. ZOSYN [Suspect]
     Indication: DEVICE RELATED INFECTION
     Dosage: EVERY 6 HOURS
     Route: 042

REACTIONS (3)
  - Pyrexia [None]
  - Rash morbilliform [None]
  - Renal failure acute [None]
